FAERS Safety Report 13732154 (Version 1)
Quarter: 2017Q3

REPORT INFORMATION
  Report Type: Spontaneous
  Country: US (occurrence: US)
  Receive Date: 20170707
  Receipt Date: 20170707
  Transmission Date: 20171127
  Serious: No
  Sender: FDA-Public Use
  Company Number: US-JNJFOC-20170523761

PATIENT
  Age: 53 Year
  Sex: Female

DRUGS (13)
  1. INVEGA SUSTENNA [Suspect]
     Active Substance: PALIPERIDONE PALMITATE
     Indication: SCHIZOPHRENIA
     Route: 030
  2. TYLENOL [Concomitant]
     Active Substance: ACETAMINOPHEN
     Route: 065
  3. HALDOL [Concomitant]
     Active Substance: HALOPERIDOL
     Route: 065
  4. THORAZINE [Concomitant]
     Active Substance: CHLORPROMAZINE
     Route: 065
  5. VITAMIN D [Concomitant]
     Active Substance: CHOLECALCIFEROL
     Route: 065
  6. VITAMIN B12 [Concomitant]
     Active Substance: CYANOCOBALAMIN
     Route: 065
  7. COGENTIN [Concomitant]
     Active Substance: BENZTROPINE MESYLATE
     Route: 065
  8. THIAMINE. [Concomitant]
     Active Substance: THIAMINE
     Route: 065
  9. PRAVASTATIN. [Concomitant]
     Active Substance: PRAVASTATIN
     Route: 065
  10. ATIVAN [Concomitant]
     Active Substance: LORAZEPAM
     Route: 065
  11. TRAZODONE [Concomitant]
     Active Substance: TRAZODONE HYDROCHLORIDE
     Route: 065
  12. ASENAPINE [Concomitant]
     Active Substance: ASENAPINE
     Route: 065
  13. HCTZ [Concomitant]
     Active Substance: HYDROCHLOROTHIAZIDE
     Route: 065

REACTIONS (1)
  - Inappropriate schedule of drug administration [Unknown]
